FAERS Safety Report 9290684 (Version 1)
Quarter: 2013Q2

REPORT INFORMATION
  Report Type: Spontaneous
  Country: US (occurrence: US)
  Receive Date: 20130515
  Receipt Date: 20130515
  Transmission Date: 20140414
  Serious: No
  Sender: FDA-Public Use
  Company Number: US-TEVA-404792USA

PATIENT
  Sex: Female

DRUGS (2)
  1. COPAXONE [Suspect]
     Indication: MULTIPLE SCLEROSIS
  2. TRAZODONE [Concomitant]
     Indication: INSOMNIA

REACTIONS (3)
  - Chest pain [Unknown]
  - Tremor [Unknown]
  - Tremor [Unknown]
